FAERS Safety Report 8582545 (Version 3)
Quarter: 2014Q2

REPORT INFORMATION
  Report Type: Spontaneous
  Country: US (occurrence: US)
  Receive Date: 20120529
  Receipt Date: 20140501
  Transmission Date: 20141212
  Serious: No
  Sender: FDA-Public Use
  Company Number: US-PFIZER INC-2012127258

PATIENT
  Age: 68 Year
  Sex: Male

DRUGS (15)
  1. SUTENT [Suspect]
     Indication: RENAL CELL CARCINOMA
     Dosage: 50 MG, 1X/DAY
     Route: 048
     Dates: start: 20120201, end: 2012
  2. ATORVASTATIN [Concomitant]
     Dosage: UNK
  3. FOLIC ACID [Concomitant]
     Dosage: UNK
  4. GLIMEPIRIDE [Concomitant]
     Dosage: UNK
  5. LEVOFLOXACIN [Concomitant]
     Dosage: UNK
  6. LISINOPRIL [Concomitant]
     Dosage: UNK
  7. OXYCODONE-ACETAMINOPHEN [Concomitant]
  8. BUMETANIDE [Concomitant]
  9. GLYBURIDE [Concomitant]
  10. LEVOTHYROXINE SODIUM [Concomitant]
  11. AMLODIPINE BESYLATE [Concomitant]
     Dosage: UNK
  12. ASPIRIN [Concomitant]
     Dosage: UNK
  13. METOPROLOL TARTRATE [Concomitant]
     Dosage: UNK
  14. PLAVIX [Concomitant]
     Dosage: UNK
  15. TRADJENTA [Concomitant]
     Dosage: UNK

REACTIONS (3)
  - Chest discomfort [Not Recovered/Not Resolved]
  - Pruritus [Unknown]
  - Wound [Unknown]
